FAERS Safety Report 7689014-6 (Version None)
Quarter: 2011Q3

REPORT INFORMATION
  Report Type: 
  Country: None (occurrence: None)
  Receive Date: 20110817
  Receipt Date: 20110812
  Transmission Date: 20111222
  Serious: Yes (Hospitalization, Other)
  Sender: FDA-Public Use
  Company Number: US-PFIZER INC-2011186335

PATIENT
  Sex: Female
  Weight: 98 kg

DRUGS (6)
  1. CHANTIX [Suspect]
     Dosage: UNK
     Dates: start: 20060101
  2. PROVENTIL [Concomitant]
     Indication: ASTHMA
     Dosage: UNK
  3. ZOLOFT [Suspect]
     Dosage: 75 MG, UNK
     Dates: start: 20060101
  4. LYRICA [Suspect]
     Indication: FIBROMYALGIA
     Dosage: 150 MG, 2X/DAY
     Route: 048
     Dates: start: 20060101
  5. GEODON [Suspect]
     Dosage: UNK
     Dates: start: 20060101
  6. ADVAIR DISKUS 100/50 [Concomitant]
     Indication: ASTHMA
     Dosage: 150 MG, UNK

REACTIONS (5)
  - CARPAL TUNNEL DECOMPRESSION [None]
  - INTESTINAL PROLAPSE [None]
  - PRECANCEROUS CELLS PRESENT [None]
  - VAGINAL PROLAPSE [None]
  - HAEMORRHOIDS [None]
